FAERS Safety Report 5795821-7 (Version None)
Quarter: 2008Q3

REPORT INFORMATION
  Report Type: 
  Country: None (occurrence: None)
  Receive Date: 20080701
  Receipt Date: 20080623
  Transmission Date: 20090109
  Serious: Yes (Hospitalization, Disabling)
  Sender: FDA-Public Use
  Company Number: FR-BAYER-200710446BFR

PATIENT
  Age: 52 Year
  Sex: Female

DRUGS (3)
  1. CIPROFLOXACIN HCL [Suspect]
     Indication: BACTERIAL PYELONEPHRITIS
     Route: 042
  2. CIPROFLOXACIN HCL [Suspect]
     Route: 048
     Dates: start: 20070305, end: 20070325
  3. NOROXIN [Suspect]
     Indication: URINARY TRACT INFECTION
     Route: 048

REACTIONS (9)
  - BLOOD CREATINE PHOSPHOKINASE INCREASED [None]
  - BURSITIS [None]
  - CELL DEATH [None]
  - CHOLESTASIS [None]
  - HEPATITIS [None]
  - INFUSION SITE RASH [None]
  - MYOPATHY [None]
  - PELVIC PAIN [None]
  - TENDON DISORDER [None]
